FAERS Safety Report 8265516-9 (Version None)
Quarter: 2012Q2

REPORT INFORMATION
  Report Type: 
  Country: None (occurrence: None)
  Receive Date: 20120406
  Receipt Date: 20120331
  Transmission Date: 20120825
  Serious: Yes (Other)
  Sender: FDA-Public Use
  Company Number: BR-PFIZER INC-2012083709

PATIENT
  Age: 35 Year
  Sex: Male

DRUGS (1)
  1. CRIZOTINIB [Suspect]

REACTIONS (1)
  - RESPIRATORY FAILURE [None]
